FAERS Safety Report 19686650 (Version 1)
Quarter: 2021Q3

REPORT INFORMATION
  Report Type: Report from Study
  Country: US (occurrence: US)
  Receive Date: 20210811
  Receipt Date: 20210811
  Transmission Date: 20211014
  Serious: No
  Sender: FDA-Public Use
  Company Number: US-IPSEN BIOPHARMACEUTICALS, INC.-2021-19322

PATIENT
  Sex: Female

DRUGS (1)
  1. SOMATULINE DEPOT [Suspect]
     Active Substance: LANREOTIDE ACETATE
     Indication: CARCINOID SYNDROME
     Dosage: 120 MG EVERY 4 WEEKS
     Route: 058
     Dates: start: 20210610

REACTIONS (2)
  - Glycosylated haemoglobin increased [Unknown]
  - Blood glucose increased [Unknown]
